FAERS Safety Report 22520327 (Version 1)
Quarter: 2023Q2

REPORT INFORMATION
  Report Type: Spontaneous
  Country: US (occurrence: None)
  Receive Date: 20230603
  Receipt Date: 20230603
  Transmission Date: 20230722
  Serious: Yes (unspecified)
  Sender: FDA-Public Use
  Company Number: None

PATIENT
  Age: 26 Year
  Sex: Female
  Weight: 123.75 kg

DRUGS (1)
  1. PARAGARD T 380A [Suspect]
     Active Substance: COPPER
     Dates: start: 20200215

REACTIONS (5)
  - Heavy menstrual bleeding [None]
  - Blood loss anaemia [None]
  - Bacterial vaginosis [None]
  - Fungal infection [None]
  - Infection [None]

NARRATIVE: CASE EVENT DATE: 20230401
